FAERS Safety Report 24272391 (Version 1)
Quarter: 2024Q3

REPORT INFORMATION
  Report Type: Spontaneous
  Country: DE (occurrence: DE)
  Receive Date: 20240902
  Receipt Date: 20240902
  Transmission Date: 20241017
  Serious: Yes (Other)
  Sender: AUROBINDO
  Company Number: DE-BAXTER-2019BAX005475

PATIENT
  Age: 62 Year
  Sex: Male
  Weight: 65 kg

DRUGS (5)
  1. BORTEZOMIB [Suspect]
     Active Substance: BORTEZOMIB
     Indication: Plasma cell myeloma
     Dosage: 1.3 MILLIGRAM/SQ. METER, CYCLICAL 4 INDUCTION CYCLES OF VCD REGIMEN ON DAY 1,4,8,11
     Route: 065
  2. ADRIAMYCIN [Suspect]
     Active Substance: DOXORUBICIN HYDROCHLORIDE
     Indication: Plasma cell myeloma
     Dosage: ONE CYCLE OF CAD REGIMEN ON DAY 1-4
     Route: 065
  3. CYCLOPHOSPHAMIDE [Suspect]
     Active Substance: CYCLOPHOSPHAMIDE
     Indication: Plasma cell myeloma
     Dosage: 900 MILLIGRAM/SQ. METER, CYCLICAL, 4 INDUCTION CYCLES OF VCD- ON DAY 1
     Route: 065
  4. CYCLOPHOSPHAMIDE [Suspect]
     Active Substance: CYCLOPHOSPHAMIDE
     Dosage: 1 CYCLE OF CAD REGIMEN ON DAY 1
     Route: 065
  5. DEXAMETHASONE [Suspect]
     Active Substance: DEXAMETHASONE
     Indication: Plasma cell myeloma
     Dosage: 40 MILLIGRAM, CYCLICAL ONE CYCLE OF CAD REGIMEN ON DAY1-4
     Route: 065

REACTIONS (3)
  - Epistaxis [Recovered/Resolved]
  - Paraesthesia [Unknown]
  - Rectal haemorrhage [Unknown]
